FAERS Safety Report 19233625 (Version 1)
Quarter: 2021Q2

REPORT INFORMATION
  Report Type: Spontaneous
  Country: FR (occurrence: FR)
  Receive Date: 20210507
  Receipt Date: 20210507
  Transmission Date: 20210717
  Serious: Yes (Hospitalization)
  Sender: FDA-Public Use
  Company Number: NVSC2021FR098482

PATIENT
  Age: 87 Year
  Sex: Female

DRUGS (2)
  1. ZOVIRAX [Suspect]
     Active Substance: ACYCLOVIR
     Indication: SINUSITIS
     Dosage: 10875 MG, QD (625MG 3 FOIS PAR JOUR)
     Route: 041
     Dates: start: 20210402, end: 20210406
  2. AMOXICILLINE [Suspect]
     Active Substance: AMOXICILLIN
     Indication: SINUSITIS
     Dosage: 12 G, QD (2G 6 FOIS PAR JOUR)
     Route: 041
     Dates: start: 20210402, end: 20210406

REACTIONS (2)
  - Crystalluria [Not Recovered/Not Resolved]
  - Nephropathy toxic [Not Recovered/Not Resolved]

NARRATIVE: CASE EVENT DATE: 20210406
